FAERS Safety Report 6570335-5 (Version None)
Quarter: 2010Q1

REPORT INFORMATION
  Report Type: 
  Country: None (occurrence: None)
  Receive Date: 20100204
  Receipt Date: 20100127
  Transmission Date: 20100710
  Serious: Yes (Hospitalization)
  Sender: FDA-Public Use
  Company Number: JP-JNJFOC-20090406327

PATIENT
  Sex: Female
  Weight: 65.1 kg

DRUGS (21)
  1. FENTANYL [Suspect]
     Indication: PAIN
     Route: 062
  2. FENTANYL [Suspect]
     Indication: DRUG USE FOR UNKNOWN INDICATION
     Route: 062
  3. METHYCOBAL [Concomitant]
     Indication: PAIN
     Route: 048
  4. GABALON [Concomitant]
     Indication: PAIN
     Route: 048
  5. OPALMON [Concomitant]
     Indication: PAIN
     Route: 048
  6. NEUROTROPIN [Concomitant]
     Indication: HYPERTENSION
     Route: 048
  7. BLOPRESS [Concomitant]
     Indication: HYPERTENSION
     Route: 048
  8. NORVASC [Concomitant]
     Indication: HYPERTENSION
     Route: 048
  9. NATRIX [Concomitant]
     Indication: HYPERTENSION
     Route: 048
  10. LIPITOR [Concomitant]
     Indication: HYPERLIPIDAEMIA
     Route: 048
  11. CARDENALIN [Concomitant]
     Indication: HYPERLIPIDAEMIA
     Route: 048
  12. MAGMITT [Concomitant]
     Indication: CONSTIPATION PROPHYLAXIS
     Route: 048
  13. GASTER D [Concomitant]
     Indication: GASTRITIS
     Route: 048
  14. JUVELA [Concomitant]
     Indication: ARTERIOSCLEROSIS
     Route: 048
  15. NOVAMIN [Concomitant]
     Indication: PROPHYLAXIS OF NAUSEA AND VOMITING
     Route: 048
  16. PURSENNID [Concomitant]
     Indication: CONSTIPATION PROPHYLAXIS
     Route: 048
  17. MORPHINE HYDROCHLORIDE [Concomitant]
     Indication: ANALGESIC THERAPY
     Route: 048
  18. MORPHINE HYDROCHLORIDE [Concomitant]
     Route: 048
  19. CRAVIT [Concomitant]
     Indication: INFLAMMATION
     Route: 048
  20. SELBEX [Concomitant]
     Indication: GASTRITIS PROPHYLAXIS
     Route: 048
  21. SELBEX [Concomitant]
     Route: 048

REACTIONS (10)
  - CHONDROCALCINOSIS PYROPHOSPHATE [None]
  - CONDITION AGGRAVATED [None]
  - EAR PAIN [None]
  - NO THERAPEUTIC RESPONSE [None]
  - OSTEOARTHRITIS [None]
  - PLEURAL EFFUSION [None]
  - SPINAL OSTEOARTHRITIS [None]
  - SPLENIC CYST [None]
  - THYROID CYST [None]
  - URINARY TRACT INFECTION [None]
